FAERS Safety Report 10207694 (Version 1)
Quarter: 2014Q2

REPORT INFORMATION
  Report Type: Spontaneous
  Country: US (occurrence: US)
  Receive Date: 20140530
  Receipt Date: 20140530
  Transmission Date: 20141212
  Serious: No
  Sender: FDA-Public Use
  Company Number: US-GLAXOSMITHKLINE-A1055574A

PATIENT
  Sex: Female

DRUGS (2)
  1. VENTOLIN [Suspect]
     Indication: CHRONIC OBSTRUCTIVE PULMONARY DISEASE
  2. DIAZEPAM [Concomitant]

REACTIONS (5)
  - Malaise [Unknown]
  - Dyspnoea [Unknown]
  - Visual impairment [Unknown]
  - Drug ineffective [Unknown]
  - Product quality issue [Unknown]
